FAERS Safety Report 19767085 (Version 1)
Quarter: 2021Q3

REPORT INFORMATION
  Report Type: Spontaneous
  Country: US (occurrence: US)
  Receive Date: 20210830
  Receipt Date: 20210830
  Transmission Date: 20211014
  Serious: Yes (Other)
  Sender: FDA-Public Use
  Company Number: None

PATIENT
  Age: 66 Year
  Sex: Female
  Weight: 112.5 kg

DRUGS (19)
  1. NEOMYCIN 500 MG TABLET [Suspect]
     Active Substance: NEOMYCIN
     Indication: CONFUSIONAL STATE
     Dosage: ?          QUANTITY:2 TABLET(S);?
     Route: 048
     Dates: start: 20201111
  2. NEOMYCIN. [Concomitant]
     Active Substance: NEOMYCIN
  3. QUETIAPINE FUMURATE, [Concomitant]
  4. CLONAZEPAM. [Concomitant]
     Active Substance: CLONAZEPAM
  5. LEVETIRACETAM. [Suspect]
     Active Substance: LEVETIRACETAM
  6. BETHANECHOL, [Concomitant]
  7. FERROUS SULFATE. [Concomitant]
     Active Substance: FERROUS SULFATE
  8. LEVOTHYROXINE. [Concomitant]
     Active Substance: LEVOTHYROXINE
  9. BAYER ASPIRIN [Concomitant]
     Active Substance: ASPIRIN
  10. FLUOXETINE HCL, [Concomitant]
  11. NEOMYCIN 500 MG TABLET [Suspect]
     Active Substance: NEOMYCIN
     Indication: AMMONIA INCREASED
     Dosage: ?          QUANTITY:2 TABLET(S);?
     Route: 048
     Dates: start: 20201111
  12. APTIOM, [Concomitant]
  13. CARPIDOPA/LEVO ER, [Concomitant]
  14. ADVAIR HFA [Concomitant]
     Active Substance: FLUTICASONE PROPIONATE\SALMETEROL XINAFOATE
  15. SIMVASTATIN. [Suspect]
     Active Substance: SIMVASTATIN
  16. OMEPRAZOLE. [Concomitant]
     Active Substance: OMEPRAZOLE
  17. ENTACAPONE. [Concomitant]
     Active Substance: ENTACAPONE
  18. BUSPIRONE HCL [Concomitant]
     Active Substance: BUSPIRONE HYDROCHLORIDE
  19. TEMAZAPAM, [Concomitant]

REACTIONS (1)
  - Deafness bilateral [None]

NARRATIVE: CASE EVENT DATE: 20210705
